FAERS Safety Report 8131702-1 (Version None)
Quarter: 2012Q1

REPORT INFORMATION
  Report Type: 
  Country: None (occurrence: None)
  Receive Date: 20120213
  Receipt Date: 20120207
  Transmission Date: 20120608
  Serious: Yes (Other)
  Sender: FDA-Public Use
  Company Number: NL-ASTELLAS-2012EU000977

PATIENT
  Sex: Male
  Weight: 70 kg

DRUGS (3)
  1. ALFUZOSIN HCL [Suspect]
     Indication: BENIGN PROSTATIC HYPERPLASIA
     Dosage: 2.5 MG, UID/QD
     Route: 065
     Dates: start: 20110216
  2. AVODART [Suspect]
     Indication: BENIGN PROSTATIC HYPERPLASIA
     Dosage: 0.5 MG, UID/QD
     Route: 065
     Dates: start: 20110216
  3. VESICARE [Suspect]
     Indication: BENIGN PROSTATIC HYPERPLASIA
     Dosage: 5 MG, UID/QD
     Route: 065
     Dates: start: 20110216

REACTIONS (1)
  - EPILEPSY [None]
